FAERS Safety Report 6017231-X (Version None)
Quarter: 2008Q4

REPORT INFORMATION
  Report Type: 
  Country: None (occurrence: None)
  Receive Date: 20081219
  Receipt Date: 20081204
  Transmission Date: 20090506
  Serious: Yes (Hospitalization)
  Sender: FDA-Public Use
  Company Number: KV200801036

PATIENT
  Age: 86 Year
  Sex: Female
  Weight: 55.3 kg

DRUGS (7)
  1. PROPAFENONE HCL [Suspect]
     Indication: ATRIAL FIBRILLATION
     Dosage: 750 MG, QD, ORAL
     Route: 048
     Dates: end: 20081101
  2. HYDROCHLORTHIAZID (HYDROCHLORTHIAZIDE) [Concomitant]
  3. RANEXA (RANOLAZINE) [Concomitant]
  4. DIGOXIN [Concomitant]
  5. COUMADIN [Concomitant]
  6. POTASSIUM CHLORIDE [Concomitant]
  7. TOPROL-XL [Concomitant]

REACTIONS (5)
  - CONTUSION [None]
  - FALL [None]
  - MYOCARDIAL INFARCTION [None]
  - PRODUCT QUALITY ISSUE [None]
  - SKIN LACERATION [None]
